FAERS Safety Report 8428602-6 (Version None)
Quarter: 2012Q2

REPORT INFORMATION
  Report Type: 
  Country: None (occurrence: None)
  Receive Date: 20120606
  Receipt Date: 20120529
  Transmission Date: 20120825
  Serious: Yes (Other)
  Sender: FDA-Public Use
  Company Number: AUR-APL-2012-02489

PATIENT
  Age: 60 Year
  Sex: Female

DRUGS (2)
  1. AMOXICILLIN [Suspect]
     Indication: TOOTHACHE
     Dosage: 1500 MG (500 MG,3 IN 1 D),
     Dates: start: 20120101, end: 20120101
  2. LYRICA [Suspect]
     Indication: DIABETIC NEUROPATHY
     Dosage: 150 MG (75 MG,2 IN 1 D),ORAL, (75 MG, 1 D), ORAL
     Route: 048
     Dates: start: 20050101, end: 20050101

REACTIONS (6)
  - BURNING SENSATION [None]
  - TOOTH INFECTION [None]
  - ERYTHEMA [None]
  - PAIN IN EXTREMITY [None]
  - TOOTHACHE [None]
  - GAIT DISTURBANCE [None]
